FAERS Safety Report 7687520-1 (Version None)
Quarter: 2011Q3

REPORT INFORMATION
  Report Type: 
  Country: None (occurrence: None)
  Receive Date: 20110817
  Receipt Date: 20110810
  Transmission Date: 20111222
  Serious: Yes (Hospitalization)
  Sender: FDA-Public Use
  Company Number: US-BIOGENIDEC-2011BI030844

PATIENT
  Sex: Male

DRUGS (2)
  1. MEDICATION (NOS) [Concomitant]
     Route: 048
  2. TYSABRI [Suspect]
     Indication: MULTIPLE SCLEROSIS
     Route: 042
     Dates: start: 20090904

REACTIONS (3)
  - FALL [None]
  - PNEUMONIA ASPIRATION [None]
  - DEVICE MALFUNCTION [None]
